FAERS Safety Report 16753431 (Version 1)
Quarter: 2019Q3

REPORT INFORMATION
  Report Type: Spontaneous
  Country: US (occurrence: US)
  Receive Date: 20190829
  Receipt Date: 20190829
  Transmission Date: 20191005
  Serious: No
  Sender: FDA-Public Use
  Company Number: US-DRREDDYS-USA/USA/19/0113418

PATIENT
  Age: 54 Year
  Sex: Female
  Weight: 90 kg

DRUGS (1)
  1. PREGABALIN. [Suspect]
     Active Substance: PREGABALIN
     Indication: NEURALGIA
     Dosage: TOOK TWO CAPSULES ON 18 AUGUST 2019 AND ONE CAPSULE ON 19 AUGUST 2019.
     Route: 048
     Dates: start: 20190818, end: 20190819

REACTIONS (2)
  - Throat irritation [Unknown]
  - Thirst [Unknown]

NARRATIVE: CASE EVENT DATE: 20190819
